FAERS Safety Report 5828602-6 (Version None)
Quarter: 2008Q3

REPORT INFORMATION
  Report Type: 
  Country: None (occurrence: None)
  Receive Date: 20080731
  Receipt Date: 20080723
  Transmission Date: 20090109
  Serious: Yes (Death, Hospitalization)
  Sender: FDA-Public Use
  Company Number: A0565468A

PATIENT
  Age: 42 Year
  Sex: Female

DRUGS (11)
  1. PAXIL CR [Suspect]
     Indication: DEPRESSION
     Dosage: 25MG IN THE MORNING
     Route: 048
     Dates: start: 20030614
  2. PAXIL CR [Suspect]
     Dosage: 12.5MG PER DAY
     Route: 048
     Dates: start: 20021109
  3. NEURONTIN [Concomitant]
  4. KLONOPIN [Concomitant]
  5. NORFLEX [Concomitant]
     Indication: NECK PAIN
     Dates: start: 20030701
  6. NUBAIN [Concomitant]
     Indication: NECK PAIN
  7. SKELAXIN [Concomitant]
  8. TRAZODONE HCL [Concomitant]
  9. ELAVIL [Concomitant]
     Dosage: 25MG AT NIGHT
  10. ASPIRIN [Concomitant]
  11. TOBRADEX [Concomitant]

REACTIONS (19)
  - ABNORMAL BEHAVIOUR [None]
  - AGITATION [None]
  - ANGER [None]
  - BIPOLAR II DISORDER [None]
  - COMPLETED SUICIDE [None]
  - CONVULSION [None]
  - DEPRESSION [None]
  - FORMICATION [None]
  - HOSTILITY [None]
  - LOSS OF CONSCIOUSNESS [None]
  - MOOD SWINGS [None]
  - NERVOUSNESS [None]
  - PARANOIA [None]
  - PSYCHOTIC DISORDER [None]
  - SUICIDAL IDEATION [None]
  - SUICIDE ATTEMPT [None]
  - THERMAL BURN [None]
  - TONGUE BITING [None]
  - URINARY INCONTINENCE [None]
